FAERS Safety Report 8760749 (Version 1)
Quarter: 2012Q4

REPORT INFORMATION
  Report Type: 
  Country: US (occurrence: US)
  Receive Date: 20120830
  Receipt Date: 20120830
  Transmission Date: 20130627
  Serious: No
  Sender: FDA-Public Use
  Company Number: US-TEVA-356166USA

PATIENT
  Sex: Male

DRUGS (2)
  1. COPAXONE [Suspect]
     Indication: MULTIPLE SCLEROSIS
  2. DALFAMPRIDINE [Suspect]
     Dosage: 20 Milligram Daily;
     Route: 048
     Dates: start: 201205

REACTIONS (1)
  - Injection site oedema [Unknown]
